FAERS Safety Report 11051993 (Version 1)
Quarter: 2015Q2

REPORT INFORMATION
  Report Type: Spontaneous
  Country: US (occurrence: None)
  Receive Date: 20150420
  Receipt Date: 20150420
  Transmission Date: 20150821
  Serious: Yes (Hospitalization)
  Sender: FDA-Public Use
  Company Number: None

PATIENT
  Age: 56 Year
  Sex: Male
  Weight: 47 kg

DRUGS (1)
  1. TAXOTERE [Suspect]
     Active Substance: DOCETAXEL
     Dates: end: 20141224

REACTIONS (17)
  - Pain [None]
  - Sepsis [None]
  - Diarrhoea [None]
  - Cough [None]
  - Hypophagia [None]
  - Dehydration [None]
  - Nausea [None]
  - Productive cough [None]
  - Back pain [None]
  - Syncope [None]
  - Chills [None]
  - Influenza like illness [None]
  - Blood ethanol increased [None]
  - Chest pain [None]
  - Vomiting [None]
  - Dyspnoea [None]
  - Pneumonia [None]

NARRATIVE: CASE EVENT DATE: 20141230
